FAERS Safety Report 4494298-1 (Version None)
Quarter: 2004Q4

REPORT INFORMATION
  Report Type: 
  Country: None (occurrence: None)
  Receive Date: 20041105
  Receipt Date: 20030923
  Transmission Date: 20050328
  Serious: Yes (Other)
  Sender: FDA-Public Use
  Company Number: US-GLAXOSMITHKLINE-A0428475A

PATIENT
  Age: 20 Year
  Sex: Female
  Weight: 80.5 kg

DRUGS (2)
  1. PAXIL [Suspect]
     Indication: DRUG USE FOR UNKNOWN INDICATION
     Dosage: 15MG PER DAY
     Route: 048
     Dates: end: 20030101
  2. ZOLOFT [Concomitant]

REACTIONS (12)
  - ANXIETY [None]
  - DISABILITY [None]
  - DRUG DEPENDENCE [None]
  - DRUG WITHDRAWAL SYNDROME [None]
  - DYSPNOEA [None]
  - FEELING ABNORMAL [None]
  - HEADACHE [None]
  - HEART RATE INCREASED [None]
  - MOOD SWINGS [None]
  - NAUSEA [None]
  - PHOTOPSIA [None]
  - VOMITING [None]
